FAERS Safety Report 5920366-0 (Version None)
Quarter: 2008Q4

REPORT INFORMATION
  Report Type: 
  Country: None (occurrence: None)
  Receive Date: 20081016
  Receipt Date: 20081008
  Transmission Date: 20090506
  Serious: Yes (Hospitalization)
  Sender: FDA-Public Use
  Company Number: PHBS2008CA05956

PATIENT
  Age: 29 Year
  Sex: Female

DRUGS (2)
  1. CARBAMAZEPINE [Suspect]
     Indication: CONVULSION
     Dosage: 200 MG, BID
  2. CARBAMAZEPINE [Suspect]
     Dosage: 400 MG, BID

REACTIONS (3)
  - BRAIN SCAN ABNORMAL [None]
  - MEMORY IMPAIRMENT [None]
  - STATUS EPILEPTICUS [None]
